FAERS Safety Report 12987883 (Version 1)
Quarter: 2016Q4

REPORT INFORMATION
  Report Type: Report from Study
  Country: BR (occurrence: BR)
  Receive Date: 20161130
  Receipt Date: 20161130
  Transmission Date: 20170207
  Serious: Yes (Death, Hospitalization)
  Sender: FDA-Public Use
  Company Number: PHHY2016BR163873

PATIENT
  Sex: Female
  Weight: 25 kg

DRUGS (1)
  1. EXJADE [Suspect]
     Active Substance: DEFERASIROX
     Indication: APLASIA PURE RED CELL
     Dosage: 750 MG, (1 DISPERSIBLE TABLET OF 500MG AND 1 DISPERSIBLE TABLET OF 250MG)
     Route: 048

REACTIONS (10)
  - Malaise [Unknown]
  - Nausea [Unknown]
  - Pyrexia [Unknown]
  - Vomiting [Unknown]
  - Systemic infection [Unknown]
  - Bacterial infection [Unknown]
  - Wrong technique in product usage process [Unknown]
  - Cardiac arrest [Fatal]
  - Hypophagia [Unknown]
  - Dehydration [Unknown]
